FAERS Safety Report 13698236 (Version 1)
Quarter: 2017Q2

REPORT INFORMATION
  Report Type: Spontaneous
  Country: US (occurrence: US)
  Receive Date: 20170628
  Receipt Date: 20170628
  Transmission Date: 20170830
  Serious: No
  Sender: FDA-Public Use
  Company Number: US-PFIZER INC-2017278194

PATIENT
  Age: 56 Year
  Sex: Male

DRUGS (1)
  1. ADVIL [Suspect]
     Active Substance: IBUPROFEN
     Indication: TOOTHACHE
     Dosage: UNK (EVERY 2 HOURS)

REACTIONS (5)
  - Dizziness [Unknown]
  - Inappropriate schedule of drug administration [Unknown]
  - Nausea [Unknown]
  - Hyperhidrosis [Unknown]
  - Blood pressure decreased [Unknown]
